FAERS Safety Report 18401662 (Version 2)
Quarter: 2020Q4

REPORT INFORMATION
  Report Type: Spontaneous
  Country: FR (occurrence: FR)
  Receive Date: 20201020
  Receipt Date: 20201104
  Transmission Date: 20210114
  Serious: Yes (Other)
  Sender: FDA-Public Use
  Company Number: FR-AUROBINDO-AUR-APL-2020-052372

PATIENT
  Age: 47 Year
  Sex: Female

DRUGS (4)
  1. TRAMADOL. [Suspect]
     Active Substance: TRAMADOL
     Indication: PERIARTHRITIS
     Dosage: UNK
     Route: 048
     Dates: start: 20200416
  2. VENLAFAXINE [Suspect]
     Active Substance: VENLAFAXINE HYDROCHLORIDE
     Indication: BIPOLAR DISORDER
     Dosage: 75 MILLIGRAM, ONCE A DAY
     Route: 048
  3. TEGRETOL [Suspect]
     Active Substance: CARBAMAZEPINE
     Indication: BIPOLAR DISORDER
     Dosage: 200 MILLIGRAM, ONCE A DAY
     Route: 048
  4. TERALITHE [Suspect]
     Active Substance: LITHIUM CARBONATE
     Indication: BIPOLAR DISORDER
     Dosage: 200 MILLIGRAM, ONCE A DAY
     Route: 048

REACTIONS (5)
  - Nausea [Recovered/Resolved]
  - Hyperthyroidism [Unknown]
  - Diarrhoea [Recovered/Resolved]
  - Asthenia [Recovered/Resolved]
  - Headache [Recovered/Resolved]

NARRATIVE: CASE EVENT DATE: 20200416
